FAERS Safety Report 14371129 (Version 10)
Quarter: 2021Q3

REPORT INFORMATION
  Report Type: Spontaneous
  Country: US (occurrence: US)
  Receive Date: 20180110
  Receipt Date: 20210713
  Transmission Date: 20211014
  Serious: Yes (Other)
  Sender: FDA-Public Use
  Company Number: US-PFIZER INC-2018007529

PATIENT
  Age: 27 Year
  Sex: Female
  Weight: 61 kg

DRUGS (17)
  1. GENOTROPIN [Suspect]
     Active Substance: SOMATROPIN
     Dosage: UNK
  2. BIOTIN [Concomitant]
     Active Substance: BIOTIN
     Dosage: 5000 UG, 1X/DAY
     Route: 048
  3. HYDROCORTISONE. [Concomitant]
     Active Substance: HYDROCORTISONE
     Dosage: 12.5 MG, DAILY (10 MG TABLET, 10 MG IN AM AND 2.5 MG PM)
  4. DDAVP [Concomitant]
     Active Substance: DESMOPRESSIN ACETATE
     Dosage: UNK (0.5 TO 0.75 MG 08.00AM), ^0.1 MG HS FOR THE LAST 2 WEEKS)
  5. GENOTROPIN [Suspect]
     Active Substance: SOMATROPIN
     Dosage: 0.3 MG, DAILY
     Dates: start: 201708
  6. GENOTROPIN [Suspect]
     Active Substance: SOMATROPIN
     Dosage: UNK
  7. DESMOPRESSIN ACETATE. [Concomitant]
     Active Substance: DESMOPRESSIN ACETATE
     Dosage: UNK UNK, DAILY (TAKE 0.75 TABS)
     Route: 048
  8. ERGOCALCIFEROL. [Concomitant]
     Active Substance: ERGOCALCIFEROL
     Dosage: 50000 IU, WEEKLY (Q SUNDAY)
     Route: 048
  9. GENOTROPIN [Suspect]
     Active Substance: SOMATROPIN
     Indication: GROWTH HORMONE DEFICIENCY
     Dosage: UNK
     Route: 058
  10. GENOTROPIN [Suspect]
     Active Substance: SOMATROPIN
     Dosage: 0.3 MG, DAILY
     Dates: start: 20171214
  11. DESMOPRESSIN ACETATE. [Concomitant]
     Active Substance: DESMOPRESSIN ACETATE
     Dosage: 0.1 MG, 2X/DAY
  12. HYDROCORTISONE. [Concomitant]
     Active Substance: HYDROCORTISONE
     Dosage: 12.5 MG, DAILY  (10 MG IN AM AND 2.5 MG PM) (HALF A TAB AT 4 PM)
  13. NORETHINDRONE ACETATE AND ETHINYL ESTRADIOL [Concomitant]
     Active Substance: ETHINYL ESTRADIOL\NORETHINDRONE ACETATE
     Dosage: UNK (ETHINYL ESTRADIOL?30MCG, NORETHINDRONE ACETATE?1.5MG)
  14. LEVOTHYROXINE. [Concomitant]
     Active Substance: LEVOTHYROXINE
     Dosage: 75 UG, WEEKLY  (75 MCG 6 DAYS A WEEK, 75 MCG ON SUN)
  15. LEVOTHYROXINE SODIUM. [Concomitant]
     Active Substance: LEVOTHYROXINE SODIUM
     Dosage: 88 UG, DAILY
     Route: 048
  16. GENOTROPIN [Suspect]
     Active Substance: SOMATROPIN
     Dosage: 0.3 MG PER DAY (5 DAYS A WEEK)
     Dates: start: 20171214
  17. LOESTRIN NOS [Concomitant]
     Active Substance: ETHINYL ESTRADIOL\NORETHINDRONE ACETATE

REACTIONS (15)
  - Apathy [Unknown]
  - Musculoskeletal discomfort [Unknown]
  - Device leakage [Unknown]
  - Drug dose omission by device [Unknown]
  - Constipation [Unknown]
  - Paraesthesia [Unknown]
  - Nasal congestion [Unknown]
  - Osteoporosis [Unknown]
  - Urticaria [Unknown]
  - Incorrect dose administered by device [Unknown]
  - Anxiety [Unknown]
  - Drooling [Unknown]
  - Influenza [Unknown]
  - Mood altered [Unknown]
  - Vision blurred [Unknown]
